FAERS Safety Report 9004464 (Version 1)
Quarter: 2013Q1

REPORT INFORMATION
  Report Type: Spontaneous
  Country: US (occurrence: None)
  Receive Date: 20130103
  Receipt Date: 20130103
  Transmission Date: 20140127
  Serious: Yes (Life-Threatening)
  Sender: FDA-Public Use
  Company Number: None

PATIENT
  Age: 48 Year
  Sex: Male
  Weight: 93.9 kg

DRUGS (1)
  1. STRATTERA [Suspect]
     Dosage: 40MG DAILY BUCCAL
     Route: 002
     Dates: start: 20080517, end: 20110219

REACTIONS (1)
  - Liver injury [None]
